FAERS Safety Report 4831949-3 (Version None)
Quarter: 2005Q4

REPORT INFORMATION
  Report Type: 
  Country: None (occurrence: None)
  Receive Date: 20051116
  Receipt Date: 20051103
  Transmission Date: 20060501
  Serious: Yes (Hospitalization, Other)
  Sender: FDA-Public Use
  Company Number: 2005-US-00878

PATIENT
  Age: 83 Year
  Sex: Male

DRUGS (7)
  1. PROBENECID AND COLCHICINE TABLETS USP, 500MG/0.5MG (COLBENEMID) [Suspect]
     Indication: GOUT
     Dosage: 2 MG, IN 2 DAYS
  2. VERAPAMIL [Suspect]
     Indication: GOUT
     Dosage: 2 MG, IN 2 DAYS
  3. VERAPAMIL [Suspect]
     Indication: TACHYARRHYTHMIA
     Dosage: 120 MG, QD, ORAL
     Route: 048
  4. FUROSEMIDE [Concomitant]
  5. ACETYLSALICYLIC ACID [Concomitant]
  6. AMBROXOL [Concomitant]
  7. THEOPHYLLINE [Concomitant]

REACTIONS (8)
  - BLOOD CREATINE PHOSPHOKINASE INCREASED [None]
  - CSF PROTEIN INCREASED [None]
  - DRUG LEVEL INCREASED [None]
  - GUILLAIN-BARRE SYNDROME [None]
  - IMMOBILE [None]
  - LOWER MOTOR NEURONE LESION [None]
  - NEUROMYOPATHY [None]
  - PARESIS [None]
